FAERS Safety Report 4736290-5 (Version None)
Quarter: 2005Q3

REPORT INFORMATION
  Report Type: 
  Country: None (occurrence: None)
  Receive Date: 20050805
  Receipt Date: 20050805
  Transmission Date: 20060218
  Serious: Yes (Hospitalization)
  Sender: FDA-Public Use
  Company Number: None

PATIENT
  Age: 71 Year
  Sex: Male

DRUGS (4)
  1. CETUXIMAB [Suspect]
     Indication: OESOPHAGEAL CARCINOMA
     Dosage: 250 MG/M2 IV Q WK
     Route: 042
     Dates: start: 20050720
  2. CETUXIMAB [Suspect]
     Indication: OESOPHAGEAL CARCINOMA
     Dosage: 250 MG/M2 IV Q WK
     Route: 042
     Dates: start: 20050725
  3. TAXOL [Suspect]
     Dosage: 50 MG/M2 Q WK
  4. CARBOPLATIN [Suspect]
     Dosage: AUC IV Q WK
     Route: 042

REACTIONS (6)
  - DEHYDRATION [None]
  - OESOPHAGEAL ULCER HAEMORRHAGE [None]
  - POSTNASAL DRIP [None]
  - RASH [None]
  - RHINITIS ALLERGIC [None]
  - SYNCOPE VASOVAGAL [None]
